FAERS Safety Report 19078243 (Version 8)
Quarter: 2022Q1

REPORT INFORMATION
  Report Type: Report from Study
  Country: US (occurrence: US)
  Receive Date: 20210331
  Receipt Date: 20220107
  Transmission Date: 20220424
  Serious: No
  Sender: FDA-Public Use
  Company Number: NVSC2021US069948

PATIENT
  Age: 66 Year
  Sex: Male
  Weight: 92.99 kg

DRUGS (3)
  1. ENTRESTO [Suspect]
     Active Substance: SACUBITRIL\VALSARTAN
     Indication: Cardiac failure
     Dosage: 50 MG, BID (24/26MG)
     Route: 048
     Dates: start: 201812
  2. ENTRESTO [Suspect]
     Active Substance: SACUBITRIL\VALSARTAN
     Dosage: 50 MG, BID (24/26MG)
     Route: 048
     Dates: start: 2019
  3. ENTRESTO [Suspect]
     Active Substance: SACUBITRIL\VALSARTAN
     Dosage: 50 MG, BID(24/26MG)
     Route: 048
     Dates: start: 201901

REACTIONS (11)
  - Blood uric acid increased [Unknown]
  - Weight fluctuation [Unknown]
  - Fluid retention [Unknown]
  - Weight increased [Unknown]
  - Gout [Unknown]
  - Weight decreased [Unknown]
  - Nasal congestion [Unknown]
  - Throat clearing [Recovering/Resolving]
  - Throat irritation [Unknown]
  - Inappropriate schedule of product administration [Unknown]
  - Product dose omission issue [Unknown]

NARRATIVE: CASE EVENT DATE: 20210501
